FAERS Safety Report 5083925-6 (Version None)
Quarter: 2006Q3

REPORT INFORMATION
  Report Type: 
  Country: None (occurrence: None)
  Receive Date: 20060727
  Receipt Date: 20060502
  Transmission Date: 20061208
  Serious: Yes (Other)
  Sender: FDA-Public Use
  Company Number: 2006048403

PATIENT
  Age: 62 Year
  Sex: Female
  Weight: 79.8331 kg

DRUGS (5)
  1. LYRICA [Suspect]
     Indication: FIBROMYALGIA
     Dosage: 150 MG (50 MG, 3 IN 1 D)
     Dates: start: 20060201, end: 20060101
  2. LYRICA [Suspect]
     Indication: POLYMYOSITIS
     Dosage: 150 MG (50 MG, 3 IN 1 D)
     Dates: start: 20060201, end: 20060101
  3. OXAZEPAM [Concomitant]
  4. NORTRIPTYLINE HCL [Concomitant]
  5. IBUPROFEN [Concomitant]

REACTIONS (1)
  - PALPITATIONS [None]
